FAERS Safety Report 18253049 (Version 1)
Quarter: 2020Q3

REPORT INFORMATION
  Report Type: Spontaneous
  Country: US (occurrence: US)
  Receive Date: 20200910
  Receipt Date: 20200910
  Transmission Date: 20201103
  Serious: Yes (Other)
  Sender: FDA-Public Use
  Company Number: US-PFIZER INC-2020348077

PATIENT
  Age: 40 Year
  Sex: Male

DRUGS (13)
  1. MORPHINE SULFATE. [Concomitant]
     Active Substance: MORPHINE SULFATE
  2. METHOCARBAMOL. [Concomitant]
     Active Substance: METHOCARBAMOL
  3. PROMETHAZINE WITH CODEINE [Concomitant]
     Active Substance: CODEINE PHOSPHATE\PROMETHAZINE HYDROCHLORIDE
  4. BACLOFEN. [Concomitant]
     Active Substance: BACLOFEN
  5. ALPRAZOLAM. [Concomitant]
     Active Substance: ALPRAZOLAM
  6. BUSPIRONE [Concomitant]
     Active Substance: BUSPIRONE HYDROCHLORIDE
  7. XANAX [Suspect]
     Active Substance: ALPRAZOLAM
     Dosage: UNK
  8. ACETAMINOPHEN;OXYCODONE HYDROCHLORIDE [Concomitant]
     Active Substance: ACETAMINOPHEN\OXYCODONE HYDROCHLORIDE
  9. HYDROXYZINE PAMOATE. [Concomitant]
     Active Substance: HYDROXYZINE PAMOATE
  10. DICLOFENAC SODIUM. [Concomitant]
     Active Substance: DICLOFENAC SODIUM
  11. OXYCONTIN [Concomitant]
     Active Substance: OXYCODONE HYDROCHLORIDE
  12. PROVENTIL [Concomitant]
     Active Substance: ALBUTEROL
  13. AMOXICILLIN CLAVULANIC ACID [Concomitant]
     Active Substance: AMOXICILLIN\CLAVULANIC ACID

REACTIONS (3)
  - Personality change [Unknown]
  - Drug dependence [Unknown]
  - Aggression [Unknown]
